FAERS Safety Report 6286902-2 (Version None)
Quarter: 2009Q3

REPORT INFORMATION
  Report Type: 
  Country: None (occurrence: None)
  Receive Date: 20090728
  Receipt Date: 20090724
  Transmission Date: 20100115
  Serious: Yes (Death)
  Sender: FDA-Public Use
  Company Number: BE-WYE-G03165409

PATIENT

DRUGS (1)
  1. TAZOCIN [Suspect]
     Indication: BRONCHOPNEUMONIA

REACTIONS (3)
  - CONCOMITANT DISEASE PROGRESSION [None]
  - LUNG NEOPLASM [None]
  - MUCOSAL INFLAMMATION [None]
